FAERS Safety Report 4622523-2 (Version None)
Quarter: 2005Q1

REPORT INFORMATION
  Report Type: 
  Country: None (occurrence: None)
  Receive Date: 20050317
  Receipt Date: 20040611
  Transmission Date: 20050727
  Serious: Yes (Other)
  Sender: FDA-Public Use
  Company Number: PHEH2004US05796

PATIENT
  Age: 9 Year
  Sex: Male

DRUGS (2)
  1. TRILEPTAL [Suspect]
     Indication: AFFECTIVE DISORDER
     Dosage: 300 MG BID
     Dates: start: 20040505, end: 20040524
  2. CONCERTA [Concomitant]

REACTIONS (3)
  - CONFUSIONAL STATE [None]
  - PETECHIAE [None]
  - PLATELET COUNT DECREASED [None]
